FAERS Safety Report 8232855-7 (Version None)
Quarter: 2012Q1

REPORT INFORMATION
  Report Type: 
  Country: None (occurrence: None)
  Receive Date: 20120324
  Receipt Date: 20120316
  Transmission Date: 20120608
  Serious: Yes (Other)
  Sender: FDA-Public Use
  Company Number: US-ASTRAZENECA-2011SE73169

PATIENT
  Age: 60 Year
  Sex: Female

DRUGS (6)
  1. ASPIRIN [Concomitant]
  2. PLAVIX [Concomitant]
  3. PRILOSEC [Suspect]
     Route: 048
  4. PRILOSEC OTC [Suspect]
     Route: 048
  5. NEXIUM [Suspect]
     Route: 048
  6. NEXIUM [Suspect]
     Route: 048

REACTIONS (6)
  - DRUG INEFFECTIVE [None]
  - CEREBROVASCULAR ACCIDENT [None]
  - ULCER [None]
  - MEMORY IMPAIRMENT [None]
  - HAEMORRHAGE [None]
  - LOWER LIMB FRACTURE [None]
